FAERS Safety Report 4497569-8 (Version None)
Quarter: 2004Q4

REPORT INFORMATION
  Report Type: 
  Country: None (occurrence: None)
  Receive Date: 20041108
  Receipt Date: 20041028
  Transmission Date: 20050328
  Serious: Yes (Death)
  Sender: FDA-Public Use
  Company Number: US-JNJFOC-20041008666

PATIENT
  Sex: Male

DRUGS (3)
  1. DURAGESIC [Suspect]
     Indication: DRUG USE FOR UNKNOWN INDICATION
     Route: 062
  2. MEPROBAMATE [Concomitant]
     Route: 049
  3. TYLENOL [Concomitant]
     Route: 049

REACTIONS (2)
  - DRUG SCREEN POSITIVE [None]
  - HEPATIC NECROSIS [None]
